FAERS Safety Report 20645204 (Version 1)
Quarter: 2022Q1

REPORT INFORMATION
  Report Type: Report from Study
  Country: JP (occurrence: None)
  Receive Date: 20220328
  Receipt Date: 20220328
  Transmission Date: 20220423
  Serious: Yes (Death)
  Sender: FDA-Public Use
  Company Number: 2022A128327

PATIENT
  Age: 60 Year
  Sex: Male
  Weight: 48.5 kg

DRUGS (25)
  1. PEMBROLIZUMAB [Suspect]
     Active Substance: PEMBROLIZUMAB
     Indication: Hormone-refractory prostate cancer
     Dosage: 200 MILLIGRAM, Q3W
     Route: 042
     Dates: start: 20210302, end: 20220222
  2. PEMBROLIZUMAB [Suspect]
     Active Substance: PEMBROLIZUMAB
     Indication: Prostate cancer metastatic
     Dosage: 200 MILLIGRAM, Q3W
     Route: 042
     Dates: start: 20210302, end: 20220222
  3. PEMBROLIZUMAB [Suspect]
     Active Substance: PEMBROLIZUMAB
     Indication: Hormone-refractory prostate cancer
     Dosage: 200 MILLIGRAM, Q3W
     Route: 042
     Dates: start: 20220315, end: 20220315
  4. PEMBROLIZUMAB [Suspect]
     Active Substance: PEMBROLIZUMAB
     Indication: Prostate cancer metastatic
     Dosage: 200 MILLIGRAM, Q3W
     Route: 042
     Dates: start: 20220315, end: 20220315
  5. OLAPARIB [Suspect]
     Active Substance: OLAPARIB
     Indication: Hormone-refractory prostate cancer
     Dosage: STARTING DOSE: 600 MG, BID, FLUCTUATED DOSAGE
     Route: 048
     Dates: start: 20210302, end: 20220131
  6. OLAPARIB [Suspect]
     Active Substance: OLAPARIB
     Indication: Prostate cancer
     Dosage: STARTING DOSE: 600 MG, BID, FLUCTUATED DOSAGE
     Route: 048
     Dates: start: 20210302, end: 20220131
  7. OLAPARIB [Suspect]
     Active Substance: OLAPARIB
     Indication: Hormone-refractory prostate cancer
     Dosage: STARTING DOSE: 600 MG, BID, FLUCTUATED DOSAGE
     Route: 048
     Dates: start: 20220201, end: 20220221
  8. OLAPARIB [Suspect]
     Active Substance: OLAPARIB
     Indication: Prostate cancer
     Dosage: STARTING DOSE: 600 MG, BID, FLUCTUATED DOSAGE
     Route: 048
     Dates: start: 20220201, end: 20220221
  9. LEUPLIN [Concomitant]
     Active Substance: LEUPROLIDE ACETATE
     Indication: Prostate cancer
     Dosage: 22.5 MILLIGRAM; OTHER; FORMULATION: SOLUTION
     Route: 058
     Dates: start: 20200317
  10. LOXOPROFEN SODIUM [Concomitant]
     Active Substance: LOXOPROFEN SODIUM
     Indication: Pain
     Dosage: 60 MILLIGRAM, TID
     Route: 048
     Dates: start: 20201222
  11. CANDESARTAN [Concomitant]
     Active Substance: CANDESARTAN
     Indication: Hypertension
     Dosage: 8 MILLIGRAM, QD
     Route: 048
     Dates: start: 20210108
  12. REBAMIPIDE [Concomitant]
     Active Substance: REBAMIPIDE
     Indication: Prophylaxis
     Dosage: TOTAL DAILY DOSE: 100 MG, PRN
     Route: 048
     Dates: start: 20210113
  13. AMITIZA [Concomitant]
     Active Substance: LUBIPROSTONE
     Indication: Constipation
     Dosage: 12 MILLIGRAM, BID
     Route: 048
     Dates: start: 20210114
  14. ACETAMINOPHEN [Concomitant]
     Active Substance: ACETAMINOPHEN
     Indication: Pain
     Dosage: TOTAL DAILY DOSE: 500 MG, PRN
     Route: 048
     Dates: start: 20210209
  15. SYMPROIC [Concomitant]
     Active Substance: NALDEMEDINE
     Indication: Constipation
     Dosage: 0.2 MILLIGRAM, QD
     Route: 048
     Dates: start: 20210303
  16. LOXOPROFEN SODIUM [Concomitant]
     Active Substance: LOXOPROFEN SODIUM
     Indication: Pain
     Dosage: TOTAL DAILY DOSE: 2083 UG/H, PRN
     Route: 061
  17. SODIUM PICOSULFATE [Concomitant]
     Active Substance: SODIUM PICOSULFATE
     Indication: Constipation
     Dosage: TOTAL DAILY DOSE 1 MG, PRN
     Route: 048
     Dates: start: 20210311
  18. OXYCONTIN [Concomitant]
     Active Substance: OXYCODONE HYDROCHLORIDE
     Indication: Pain
     Dosage: 5 MILLIGRAM, QD
     Route: 048
     Dates: start: 20210406
  19. CALCIUM CARBONATE\CHOLECALCIFEROL\MAGNESIUM CARBONATE [Concomitant]
     Active Substance: CALCIUM CARBONATE\CHOLECALCIFEROL\MAGNESIUM CARBONATE
     Indication: Prophylaxis
     Dosage: 1 TABLET, QD
     Route: 048
     Dates: start: 20210506
  20. DENOSUMAB [Concomitant]
     Active Substance: DENOSUMAB
     Indication: Prophylaxis
     Dosage: 120 MILLIGRAM, OTHER
     Route: 058
     Dates: start: 20210506
  21. SODIUM FERROUS CITRATE [Concomitant]
     Active Substance: SODIUM FERROUS CITRATE
     Indication: Anaemia
     Dosage: 50 MILLIGRAM, BID
     Route: 048
     Dates: start: 20210928
  22. OXYCONTIN [Concomitant]
     Active Substance: OXYCODONE HYDROCHLORIDE
     Indication: Pain
     Dosage: TOTAL DAILY DOSE: 10 MILLIGRAM, PRN
     Route: 048
     Dates: start: 20211109
  23. CANDESARTAN [Concomitant]
     Active Substance: CANDESARTAN
     Indication: Hypertension
     Dosage: 2 MILLIGRAM, QOD
     Route: 048
     Dates: start: 20211125
  24. OXINORM [ORGOTEIN] [Concomitant]
     Indication: Pain
     Dosage: 5 MILLIGRAM, TID
     Route: 048
     Dates: start: 20211221
  25. TARIGEN [Concomitant]
     Indication: Pain
     Dosage: 5 MILLIGRAM, QD
     Route: 048
     Dates: start: 20220215

REACTIONS (1)
  - Death [Fatal]

NARRATIVE: CASE EVENT DATE: 20220316
